FAERS Safety Report 9381922 (Version 2)
Quarter: 2013Q3

REPORT INFORMATION
  Report Type: Spontaneous
  Country: FR (occurrence: AT)
  Receive Date: 20130703
  Receipt Date: 20130827
  Transmission Date: 20140515
  Serious: Yes (Hospitalization)
  Sender: FDA-Public Use
  Company Number: AT-FRI-1000046345

PATIENT
  Sex: Female

DRUGS (10)
  1. MILNACIPRAN [Suspect]
     Dosage: 50 MG
     Route: 048
     Dates: start: 20090917, end: 20090917
  2. MILNACIPRAN [Suspect]
     Dosage: 100 MG
     Route: 048
     Dates: start: 20090918, end: 20090920
  3. MILNACIPRAN [Suspect]
     Dosage: 150 MG
     Route: 048
     Dates: start: 20090921, end: 20090923
  4. MILNACIPRAN [Suspect]
     Dosage: 200 MG
     Route: 048
     Dates: start: 20090924
  5. SEROQUEL [Suspect]
     Dosage: 50 MG
     Route: 048
     Dates: start: 20090925, end: 20090925
  6. TRITTICO [Suspect]
     Dosage: 75 MG
     Route: 048
     Dates: start: 20090828, end: 20090911
  7. TRITTICO [Suspect]
     Dosage: 150 MG
     Route: 048
     Dates: start: 20090912
  8. ATACAND [Suspect]
     Route: 048
  9. AMLODIPIN [Suspect]
     Dosage: 5 MG
     Route: 048
     Dates: start: 20090908
  10. EFFORTIL [Concomitant]

REACTIONS (2)
  - Circulatory collapse [Recovered/Resolved]
  - Overdose [Recovered/Resolved]
